FAERS Safety Report 5591359-0 (Version None)
Quarter: 2008Q1

REPORT INFORMATION
  Report Type: 
  Country: None (occurrence: None)
  Receive Date: 20080110
  Receipt Date: 20080110
  Transmission Date: 20080703
  Serious: Yes (Hospitalization)
  Sender: FDA-Public Use
  Company Number: None

PATIENT
  Age: 59 Year
  Sex: Female
  Weight: 113.5 kg

DRUGS (12)
  1. BUPROPION HCL [Suspect]
     Indication: DEPRESSION
  2. AMOXICILLIN [Suspect]
     Indication: PHARYNGOLARYNGEAL PAIN
     Dosage: 500 MG  TID  PO
     Route: 048
  3. LISINOPRIL [Concomitant]
  4. CLONAZEPAM [Concomitant]
  5. AMLODIPINE [Concomitant]
  6. AZITHROMYCIN [Concomitant]
  7. MIRTAZAPINE [Concomitant]
  8. QUETIAPINE [Concomitant]
  9. VENLAFAXINE HCL [Concomitant]
  10. FLUCONAZOLE [Concomitant]
  11. ACYCLOVIR [Concomitant]
  12. SUCRALFATE [Concomitant]

REACTIONS (8)
  - DERMATITIS ALLERGIC [None]
  - FUNGAL OESOPHAGITIS [None]
  - IDIOSYNCRATIC DRUG REACTION [None]
  - INFECTION [None]
  - PHARYNGOLARYNGEAL PAIN [None]
  - PYREXIA [None]
  - RASH [None]
  - VIRAL OESOPHAGITIS [None]
